FAERS Safety Report 8902319 (Version 1)
Quarter: 2012Q4

REPORT INFORMATION
  Report Type: 
  Country: US (occurrence: US)
  Receive Date: 20121112
  Receipt Date: 20121112
  Transmission Date: 20130627
  Serious: No
  Sender: FDA-Public Use
  Company Number: US-PFIZER INC-2012277671

PATIENT
  Age: 78 Year
  Sex: Female
  Weight: 45.35 kg

DRUGS (4)
  1. GLUCOTROL XL [Suspect]
     Indication: DIABETES
     Dosage: 5 mg, 4x/day
     Route: 048
  2. DIGOXIN [Concomitant]
     Indication: HEART ATTACK
     Dosage: UNK
  3. SIMVASTATIN [Concomitant]
     Indication: HIGH CHOLESTEROL
     Dosage: UNK
  4. ATENOLOL [Concomitant]
     Indication: BLOOD PRESSURE HIGH
     Dosage: UNK

REACTIONS (4)
  - Blood glucose increased [Unknown]
  - Malaise [Recovered/Resolved]
  - Oropharyngeal pain [Not Recovered/Not Resolved]
  - Tonsillitis [Not Recovered/Not Resolved]
